FAERS Safety Report 11871423 (Version 1)
Quarter: 2015Q4

REPORT INFORMATION
  Report Type: Spontaneous
  Country: TR (occurrence: TR)
  Receive Date: 20151228
  Receipt Date: 20151228
  Transmission Date: 20160305
  Serious: Yes (Life-Threatening, Hospitalization)
  Sender: FDA-Public Use
  Company Number: TR-CEDAR PHARMACEUTICALS-2015CDR00017

PATIENT
  Age: 15 Year
  Sex: Male

DRUGS (1)
  1. METHIMAZOLE. [Suspect]
     Active Substance: METHIMAZOLE
     Indication: HYPERTHYROIDISM
     Dosage: 25 MG, 1X/DAY
     Route: 065

REACTIONS (1)
  - Serum sickness [Recovering/Resolving]
